FAERS Safety Report 17291727 (Version 1)
Quarter: 2020Q1

REPORT INFORMATION
  Report Type: Report from Study
  Country: SI (occurrence: SI)
  Receive Date: 20200121
  Receipt Date: 20200121
  Transmission Date: 20200409
  Serious: Yes (Hospitalization, Other)
  Sender: FDA-Public Use
  Company Number: SI-BAYER-2018-212286

PATIENT
  Age: 78 Year
  Sex: Male

DRUGS (10)
  1. NEXAVAR [Suspect]
     Active Substance: SORAFENIB
     Indication: HEPATOCELLULAR CARCINOMA
     Dosage: UNK
     Dates: start: 20181108, end: 20181126
  2. NEXAVAR [Suspect]
     Active Substance: SORAFENIB
     Indication: HEPATOCELLULAR CARCINOMA
     Dosage: UNK
     Dates: start: 20190101
  3. ENALAPRIL [Concomitant]
     Active Substance: ENALAPRIL
     Dosage: 10 MG
  4. VESOMNI [Concomitant]
     Active Substance: SOLIFENACIN\TAMSULOSIN
     Dosage: 6 MG
  5. GLUCOBAY [Concomitant]
     Active Substance: ACARBOSE
     Dosage: UNK
  6. NEXAVAR [Suspect]
     Active Substance: SORAFENIB
     Indication: HEPATOCELLULAR CARCINOMA
     Dosage: UNK
     Dates: start: 20190408, end: 20190425
  7. ENAP HL [Concomitant]
     Dosage: 10 MG/12.5 MG
  8. CORDIPIN [Concomitant]
     Dosage: 2X40 MG
  9. HUMALOG MIX [Concomitant]
     Active Substance: INSULIN LISPRO
     Dosage: 25
  10. NEXAVAR [Suspect]
     Active Substance: SORAFENIB
     Indication: HEPATOCELLULAR CARCINOMA
     Dosage: 400 MG DAILY
     Dates: start: 20190529, end: 20190609

REACTIONS (21)
  - Joint swelling [Not Recovered/Not Resolved]
  - Hypertension [Recovering/Resolving]
  - Testicular pain [Not Recovered/Not Resolved]
  - Hypertension [Recovering/Resolving]
  - Chronic kidney disease [None]
  - Vertigo [Recovering/Resolving]
  - Ammonia increased [Recovering/Resolving]
  - Renal impairment [Not Recovered/Not Resolved]
  - Dysphagia [Recovered/Resolved]
  - Ascites [Not Recovered/Not Resolved]
  - Hypoglycaemia [Recovered/Resolved]
  - Dysuria [Recovering/Resolving]
  - Testicular swelling [Not Recovered/Not Resolved]
  - Joint swelling [Recovered/Resolved]
  - Gait disturbance [Recovering/Resolving]
  - Dysuria [Recovering/Resolving]
  - Blood creatinine increased [Not Recovered/Not Resolved]
  - Dysuria [Not Recovered/Not Resolved]
  - Urinary tract infection [Recovering/Resolving]
  - Hypertension [None]
  - Muscle spasms [Recovering/Resolving]

NARRATIVE: CASE EVENT DATE: 201811
